FAERS Safety Report 6169744-8 (Version None)
Quarter: 2009Q2

REPORT INFORMATION
  Report Type: 
  Country: None (occurrence: None)
  Receive Date: 20090428
  Receipt Date: 20090414
  Transmission Date: 20091009
  Serious: Yes (Other)
  Sender: FDA-Public Use
  Company Number: JP-ROCHE-613097

PATIENT
  Sex: Male
  Weight: 61.5 kg

DRUGS (12)
  1. CAPECITABINE [Suspect]
     Indication: COLON CANCER
     Route: 048
     Dates: start: 20081201, end: 20081214
  2. CAPECITABINE [Suspect]
     Route: 048
     Dates: start: 20081222, end: 20090104
  3. PREDNISOLONE [Concomitant]
     Dosage: DOSEFORM: ORAL FORMULATION (NOT OTHERWISE SPECIFIED)
     Route: 048
     Dates: start: 20090109, end: 20090112
  4. PREDNISOLONE [Concomitant]
     Dosage: DOSEFORM: ORAL FORMULATION (NOS) NOTE IN THE MORNING: 15 MG, IN THE DAYTIME 10MG
     Route: 048
     Dates: start: 20090113, end: 20090116
  5. PREDNISOLONE [Concomitant]
     Dosage: DOSEFORM: ORAL FORMULATION (NOT OTHERWISE SPECIFIED)
     Route: 048
     Dates: start: 20090117, end: 20090123
  6. TAKEPRON [Concomitant]
     Route: 048
     Dates: start: 20090109, end: 20090117
  7. PETROLATUM SALICYLICUM [Concomitant]
     Dosage: DRUG: PETROLATUM SALICYLATE
     Route: 061
     Dates: start: 20090123, end: 20090123
  8. BASEN [Concomitant]
     Dosage: DRUG: BASEN OD
     Route: 048
     Dates: start: 20081201
  9. MAINTATE [Concomitant]
     Route: 048
     Dates: start: 20081201
  10. LENDORMIN [Concomitant]
     Dosage: DRUG: LENDORMIN D
     Route: 048
     Dates: start: 20081201
  11. PYDOXAL [Concomitant]
     Dosage: DRUG: PYDOXAL TAB
     Route: 048
     Dates: start: 20081201, end: 20090215
  12. AMLODIPINE [Concomitant]
     Dosage: DRUG: AMLODIN OD
     Route: 048
     Dates: start: 20081201

REACTIONS (8)
  - CONJUNCTIVITIS [None]
  - DIARRHOEA [None]
  - DYSGEUSIA [None]
  - ERYTHEMA [None]
  - PALMAR-PLANTAR ERYTHRODYSAESTHESIA SYNDROME [None]
  - PENILE ULCERATION [None]
  - SCROTAL ERYTHEMA [None]
  - SCROTAL ULCER [None]
